FAERS Safety Report 10187097 (Version 1)
Quarter: 2014Q2

REPORT INFORMATION
  Report Type: Spontaneous
  Country: IL (occurrence: IL)
  Receive Date: 20140522
  Receipt Date: 20140522
  Transmission Date: 20141212
  Serious: Yes (Hospitalization, Other)
  Sender: FDA-Public Use
  Company Number: IL-RANBAXY-2014RR-81354

PATIENT
  Age: 25 Year
  Sex: Male

DRUGS (1)
  1. IBUPROFEN [Suspect]
     Indication: PYREXIA
     Dosage: 400 MG, QID FOR MORE THAN 1 WEEK
     Route: 048

REACTIONS (4)
  - Gastritis erosive [Recovered/Resolved]
  - Hypoalbuminaemia [Recovered/Resolved]
  - Protein-losing gastroenteropathy [Recovered/Resolved]
  - Weight decreased [Recovered/Resolved]
